FAERS Safety Report 7572301-X (Version None)
Quarter: 2011Q2

REPORT INFORMATION
  Report Type: 
  Country: None (occurrence: None)
  Receive Date: 20110624
  Receipt Date: 20110614
  Transmission Date: 20111010
  Serious: Yes (Other)
  Sender: FDA-Public Use
  Company Number: PHHY2011CZ51648

PATIENT
  Age: 69 Year
  Sex: Female

DRUGS (5)
  1. FENOFIBRATE [Concomitant]
  2. PRESTARIUM [Concomitant]
  3. RASILEZ HCT [Suspect]
     Indication: HYPERTENSION
     Dosage: 1 DF DAILY
     Dates: start: 20101125, end: 20101201
  4. EUTHYROX [Concomitant]
  5. BETALOC [Concomitant]

REACTIONS (3)
  - OEDEMA PERIPHERAL [None]
  - BLOOD PRESSURE ABNORMAL [None]
  - DYSPNOEA [None]
